FAERS Safety Report 6522732-1 (Version None)
Quarter: 2009Q4

REPORT INFORMATION
  Report Type: 
  Country: None (occurrence: None)
  Receive Date: 20091230
  Receipt Date: 20091218
  Transmission Date: 20100525
  Serious: Yes (Hospitalization, Other)
  Sender: FDA-Public Use
  Company Number: US-MYLANLABS-2009S1020808

PATIENT
  Age: 56 Year
  Sex: Male
  Weight: 147.42 kg

DRUGS (3)
  1. ATENOLOL [Suspect]
     Indication: HYPERTENSION
     Route: 048
  2. RISPERDAL CONSTA [Suspect]
     Indication: SCHIZOPHRENIA
     Route: 030
  3. DEPAKOTE [Concomitant]

REACTIONS (2)
  - BRADYCARDIA [None]
  - FEELING ABNORMAL [None]
